FAERS Safety Report 23568990 (Version 1)
Quarter: 2024Q1

REPORT INFORMATION
  Report Type: Report from Study
  Country: US (occurrence: US)
  Receive Date: 20240227
  Receipt Date: 20240227
  Transmission Date: 20240410
  Serious: No
  Sender: FDA-Public Use
  Company Number: US-ORG100014127-2024000005

PATIENT
  Age: 25 Year
  Sex: Male

DRUGS (18)
  1. METOPIRONE [Suspect]
     Active Substance: METYRAPONE
     Indication: Product used for unknown indication
     Dosage: 250 MG:10 CAPSULES ORALLY ONCE THE NIGHT BEFORE THE TEST
     Route: 048
     Dates: start: 20240104
  2. ACNE MEDICAT GEL 2.5% [Concomitant]
     Indication: Product used for unknown indication
  3. AKLIEF CRE 0.005% [Concomitant]
     Indication: Product used for unknown indication
  4. BENZONATATE CAP 100MG [Concomitant]
     Indication: Product used for unknown indication
  5. BENZOYL PER LIQ 10% WASH/ BP WASH LIQ 10% [Concomitant]
     Indication: Product used for unknown indication
  6. CHLORHEX GLU SOL 0.12% [Concomitant]
     Indication: Product used for unknown indication
  7. CICLOPIROX SOL 8% [Concomitant]
     Indication: Product used for unknown indication
  8. CLOTRIM/BETA CRE DIPROP [Concomitant]
     Indication: Product used for unknown indication
  9. CLOTRIMAZOLE CRE 1% [Concomitant]
     Indication: Product used for unknown indication
  10. CYCLOSPORINE EMU 0.05% OP [Concomitant]
     Indication: Product used for unknown indication
  11. ERY/BENZOYL GEL 3-5% [Concomitant]
     Indication: Product used for unknown indication
  12. ACETAMINOPHEN\HYDROCODONE [Concomitant]
     Active Substance: ACETAMINOPHEN\HYDROCODONE
     Indication: Product used for unknown indication
  13. HYDROXYZ HCL TAB 25MG [Concomitant]
     Indication: Product used for unknown indication
  14. ONDANSETRON TAB 4MG ODT [Concomitant]
     Indication: Product used for unknown indication
  15. PREDNISONE [Concomitant]
     Active Substance: PREDNISONE
     Indication: Product used for unknown indication
  16. PROMETHAZINE SOL DM [Concomitant]
     Indication: Product used for unknown indication
  17. TERBINAFINE TAB 250MG [Concomitant]
     Indication: Product used for unknown indication
  18. TRETINOIN CRE 0.05% [Concomitant]
     Indication: Product used for unknown indication

REACTIONS (1)
  - Vertigo [Recovered/Resolved]

NARRATIVE: CASE EVENT DATE: 20240107
